FAERS Safety Report 18542516 (Version 1)
Quarter: 2020Q4

REPORT INFORMATION
  Report Type: Spontaneous
  Country: US (occurrence: US)
  Receive Date: 20201125
  Receipt Date: 20201125
  Transmission Date: 20210114
  Serious: No
  Sender: FDA-Public Use
  Company Number: US-STRIDES ARCOLAB LIMITED-2020SP011064

PATIENT
  Age: 14 Year
  Sex: Female

DRUGS (2)
  1. SUCRALFATE. [Concomitant]
     Active Substance: SUCRALFATE
     Indication: ECTOPIC GASTRIC MUCOSA
     Dosage: UNK
     Route: 065
  2. RANITIDINE. [Suspect]
     Active Substance: RANITIDINE
     Indication: ECTOPIC GASTRIC MUCOSA
     Dosage: 150 MILLIGRAM, BID
     Route: 065

REACTIONS (1)
  - Off label use [Unknown]
